FAERS Safety Report 4936104-4 (Version None)
Quarter: 2006Q1

REPORT INFORMATION
  Report Type: 
  Country: None (occurrence: None)
  Receive Date: 20060127
  Receipt Date: 20051010
  Transmission Date: 20060701
  Serious: Yes (Other)
  Sender: FDA-Public Use
  Company Number: 2005141418

PATIENT
  Sex: Male

DRUGS (4)
  1. LYRICA [Suspect]
     Indication: ILL-DEFINED DISORDER
     Dosage: 300 MG (1 D)
  2. CYMBALTA [Concomitant]
  3. NEURONTIN [Concomitant]
  4. DURAGESIC-100 [Concomitant]

REACTIONS (1)
  - TREMOR [None]
